FAERS Safety Report 12087504 (Version 1)
Quarter: 2016Q1

REPORT INFORMATION
  Report Type: Spontaneous
  Country: US (occurrence: US)
  Receive Date: 20160217
  Receipt Date: 20160217
  Transmission Date: 20160526
  Serious: Yes (Other)
  Sender: FDA-Public Use
  Company Number: US-TAKEDA-2015TUS013068

PATIENT
  Age: 83 Year
  Sex: Female

DRUGS (2)
  1. PREVACID [Suspect]
     Active Substance: LANSOPRAZOLE
     Indication: GASTROOESOPHAGEAL REFLUX DISEASE
  2. PREVACID [Suspect]
     Active Substance: LANSOPRAZOLE
     Indication: DYSPEPSIA
     Dosage: 15 MG, QD
     Route: 048

REACTIONS (6)
  - Cardiac disorder [Unknown]
  - Diabetes mellitus [Unknown]
  - Incorrect drug administration duration [Not Recovered/Not Resolved]
  - Dyspepsia [Unknown]
  - Off label use [Not Recovered/Not Resolved]
  - Blood pressure abnormal [Unknown]
